FAERS Safety Report 12871276 (Version 1)
Quarter: 2016Q4

REPORT INFORMATION
  Report Type: Spontaneous
  Country: US (occurrence: US)
  Receive Date: 20161021
  Receipt Date: 20161021
  Transmission Date: 20170207
  Serious: Yes (Hospitalization, Other)
  Sender: FDA-Public Use
  Company Number: US-BRISTOL-MYERS SQUIBB COMPANY-BMS-2016-087441

PATIENT
  Age: 60 Year
  Sex: Female

DRUGS (1)
  1. OPDIVO [Suspect]
     Active Substance: NIVOLUMAB
     Indication: NON-SMALL CELL LUNG CANCER
     Route: 065
     Dates: start: 2015

REACTIONS (7)
  - Blood creatinine increased [Unknown]
  - Pyrexia [Unknown]
  - Abdominal pain [Unknown]
  - Asthenia [Unknown]
  - Renal function test abnormal [Unknown]
  - Liver function test increased [Unknown]
  - Anuria [Unknown]
